FAERS Safety Report 5860431-X (Version None)
Quarter: 2008Q3

REPORT INFORMATION
  Report Type: 
  Country: None (occurrence: None)
  Receive Date: 20080827
  Receipt Date: 20080822
  Transmission Date: 20090109
  Serious: Yes (Hospitalization)
  Sender: FDA-Public Use
  Company Number: AU-BOEHRINGER INGELHEIM GMBH, GERMANY-2008-BP-13313AU

PATIENT
  Age: 70 Year
  Sex: Male

DRUGS (1)
  1. MOBIC [Suspect]

REACTIONS (1)
  - TRANSIENT ISCHAEMIC ATTACK [None]
